FAERS Safety Report 15195933 (Version 2)
Quarter: 2018Q3

REPORT INFORMATION
  Report Type: Spontaneous
  Country: US (occurrence: US)
  Receive Date: 20180725
  Receipt Date: 20180727
  Transmission Date: 20181010
  Serious: No
  Sender: FDA-Public Use
  Company Number: US-PFIZER INC-2018297405

PATIENT
  Sex: Female

DRUGS (1)
  1. CHANTIX [Suspect]
     Active Substance: VARENICLINE TARTRATE
     Indication: SMOKING CESSATION THERAPY
     Dosage: UNK

REACTIONS (8)
  - Nightmare [Unknown]
  - Expired product administered [Unknown]
  - Dysgeusia [Unknown]
  - Drug effect incomplete [Unknown]
  - Nausea [Not Recovered/Not Resolved]
  - Lethargy [Unknown]
  - Agitation [Unknown]
  - Feeling abnormal [Unknown]
